FAERS Safety Report 8156046-3 (Version None)
Quarter: 2012Q1

REPORT INFORMATION
  Report Type: 
  Country: None (occurrence: None)
  Receive Date: 20120222
  Receipt Date: 20120210
  Transmission Date: 20120608
  Serious: No
  Sender: FDA-Public Use
  Company Number: CA-ELI_LILLY_AND_COMPANY-CA201202003501

PATIENT
  Sex: Female

DRUGS (10)
  1. LYRICA [Concomitant]
     Dosage: 300 MG, EACH EVENING
  2. OXYCONTIN [Concomitant]
     Dosage: 6 MG, QD
  3. COLACE [Concomitant]
     Dosage: 100 MG, BID
  4. CLONAZEPAM [Concomitant]
     Dosage: 1.5 MG, QD
  5. CYMBALTA [Suspect]
     Indication: DEPRESSION
     Dosage: 30 MG, UNKNOWN
  6. CYMBALTA [Suspect]
     Dosage: 60 MG, UNKNOWN
  7. CYMBALTA [Suspect]
     Dosage: 90 MG, UNKNOWN
  8. CYMBALTA [Suspect]
     Dosage: 60 MG, UNKNOWN
  9. CESAMET [Concomitant]
     Dosage: 1 MG, EACH EVENING
  10. LYRICA [Concomitant]
     Dosage: 225 MG, EACH MORNING

REACTIONS (1)
  - HEPATIC ENZYME INCREASED [None]
